APPROVED DRUG PRODUCT: ETHACRYNATE SODIUM
Active Ingredient: ETHACRYNATE SODIUM
Strength: EQ 50MG BASE/VIAL
Dosage Form/Route: INJECTABLE;INJECTION
Application: A204634 | Product #001
Applicant: MYLAN INSTITUTIONAL LLC
Approved: Aug 23, 2016 | RLD: No | RS: No | Type: DISCN